FAERS Safety Report 19188743 (Version 1)
Quarter: 2021Q2

REPORT INFORMATION
  Report Type: Spontaneous
  Country: US (occurrence: US)
  Receive Date: 20210427
  Receipt Date: 20210427
  Transmission Date: 20210717
  Serious: Yes (Death)
  Sender: FDA-Public Use
  Company Number: None

PATIENT
  Age: 88 Year
  Sex: Male
  Weight: 85.5 kg

DRUGS (18)
  1. METHYLPREDNISOLONE 4MG [Concomitant]
     Active Substance: METHYLPREDNISOLONE
  2. DOCUSATE 100MG [Concomitant]
     Active Substance: DOCUSATE
  3. ISOSORBIDE MONONITRATE 30MG [Concomitant]
     Active Substance: ISOSORBIDE MONONITRATE
  4. METFORMIN 500MG [Concomitant]
     Active Substance: METFORMIN HYDROCHLORIDE
  5. LISINOPRIL 10MG [Concomitant]
     Active Substance: LISINOPRIL
  6. ASPIRIN 81MG [Concomitant]
     Active Substance: ASPIRIN
  7. LUPRON DEPOT [Concomitant]
     Active Substance: LEUPROLIDE ACETATE
  8. GLIMEPIRIDE 2MG [Concomitant]
     Active Substance: GLIMEPIRIDE
  9. VITAMIN D 400UNIT [Concomitant]
  10. ABIRATERONE. [Suspect]
     Active Substance: ABIRATERONE ACETATE
     Indication: PROSTATE CANCER
     Route: 048
     Dates: start: 20191031, end: 20210425
  11. RANITIDINE 75MG [Concomitant]
  12. CARVEDILOL 6.25MG [Concomitant]
     Active Substance: CARVEDILOL
  13. LIPITOR [Concomitant]
     Active Substance: ATORVASTATIN CALCIUM
  14. FUROSEMIDE 20MG [Concomitant]
     Active Substance: FUROSEMIDE
  15. AMLODIPINE [Concomitant]
     Active Substance: AMLODIPINE BESYLATE
  16. TAMSULOSIN 0.4MG [Concomitant]
     Active Substance: TAMSULOSIN
  17. METOPROLOL TARTRATE 50MG [Concomitant]
     Active Substance: METOPROLOL TARTRATE
  18. PREDNISONE 5MG [Concomitant]
     Active Substance: PREDNISONE

REACTIONS (1)
  - Death [None]

NARRATIVE: CASE EVENT DATE: 20210425
